FAERS Safety Report 5002800-6 (Version None)
Quarter: 2006Q2

REPORT INFORMATION
  Report Type: 
  Country: None (occurrence: None)
  Receive Date: 20060512
  Receipt Date: 20060427
  Transmission Date: 20061013
  Serious: Yes (Hospitalization)
  Sender: FDA-Public Use
  Company Number: 219670

PATIENT
  Age: 57 Year
  Sex: Female
  Weight: 81.6 kg

DRUGS (13)
  1. AVASTIN [Suspect]
     Indication: COLORECTAL CANCER
     Dosage: 400 MG, Q2W, INTRAVENOUS
     Route: 042
     Dates: start: 20050210, end: 20050905
  2. OXALIPLATIN (OXALIPLATIN) [Concomitant]
  3. LEUCOVORIN CALCIUM [Concomitant]
  4. 5U (FLUOROURACIL) [Concomitant]
  5. IRINOTECAN HCL [Concomitant]
  6. NAVOBAN (TROPISETRON HYDROCHLORIDE) [Concomitant]
  7. EMEND [Concomitant]
  8. FORTECORTIN (DEXAMETHASONE) [Concomitant]
  9. LOPERAMIDE [Concomitant]
  10. ZOFRAN [Concomitant]
  11. BELOC-ZOK MITE (METOPROLOL SUCCINATE) [Concomitant]
  12. TOREM (TORSEMIDE) [Concomitant]
  13. METOCLOPRAMIDE (METOCLOPRAMIDE HYDROCHLORIDE) [Concomitant]

REACTIONS (1)
  - GASTRITIS [None]
